FAERS Safety Report 8879399 (Version 7)
Quarter: 2013Q2

REPORT INFORMATION
  Report Type: Spontaneous
  Country: US (occurrence: US)
  Receive Date: 20121031
  Receipt Date: 20130524
  Transmission Date: 20140414
  Serious: Yes (Hospitalization, Other)
  Sender: FDA-Public Use
  Company Number: US-009507513-1210USA010516

PATIENT
  Sex: Female
  Weight: 70.3 kg

DRUGS (3)
  1. FOSAMAX [Suspect]
     Indication: OSTEOPOROSIS
     Dosage: 70 MG, QW
     Route: 048
     Dates: start: 200311, end: 200811
  2. ALENDRONATE SODIUM [Suspect]
     Indication: OSTEOPOROSIS
     Dosage: 70 MG, UNK
     Route: 048
     Dates: start: 200811, end: 201207
  3. LASIX (FUROSEMIDE SODIUM) [Concomitant]
     Indication: FLUID RETENTION
     Dosage: UNK
     Dates: start: 200210

REACTIONS (76)
  - Femur fracture [Unknown]
  - Femur fracture [Unknown]
  - Intramedullary rod insertion [Unknown]
  - Breast cancer [Unknown]
  - Lung adenocarcinoma stage I [Unknown]
  - Lung lobectomy [Unknown]
  - Acute prerenal failure [Unknown]
  - Mediastinoscopy [Unknown]
  - Breast operation [Unknown]
  - Periodontal operation [Unknown]
  - Osteonecrosis [Unknown]
  - Granulomatosis with polyangiitis [Unknown]
  - Mucosal inflammation [Unknown]
  - Dental care [Unknown]
  - Low turnover osteopathy [Unknown]
  - Road traffic accident [Unknown]
  - Rib fracture [Unknown]
  - Nodule [Unknown]
  - Wrist fracture [Unknown]
  - Musculoskeletal disorder [Unknown]
  - Bone scan abnormal [Unknown]
  - Osteopenia [Unknown]
  - Contusion [Unknown]
  - Nasal septum deviation [Unknown]
  - Angiocentric lymphoma [Unknown]
  - Otitis externa [Unknown]
  - Sarcoidosis [Unknown]
  - Cerumen impaction [Unknown]
  - Tendonitis [Unknown]
  - Dermatitis [Unknown]
  - Thyroid disorder [Unknown]
  - Colon polypectomy [Unknown]
  - Flank pain [Unknown]
  - Herpes zoster [Unknown]
  - Post herpetic neuralgia [Unknown]
  - Blood creatinine abnormal [Unknown]
  - Fluid retention [Unknown]
  - Arteriosclerosis [Unknown]
  - Blood urea increased [Unknown]
  - Blood potassium abnormal [Unknown]
  - Tachycardia [Unknown]
  - Pernicious anaemia [Unknown]
  - Axillary pain [Unknown]
  - Dyspnoea [Unknown]
  - Renal impairment [Unknown]
  - Inflammation [Unknown]
  - Dyspnoea [Unknown]
  - Papilloma [Unknown]
  - Carpal tunnel syndrome [Unknown]
  - Skin lesion [Unknown]
  - Tendonitis [Unknown]
  - Petechiae [Unknown]
  - Bursitis [Unknown]
  - Incision site hypoaesthesia [Recovering/Resolving]
  - Muscle rupture [Unknown]
  - Migraine [Unknown]
  - Arthritis [Unknown]
  - Rash pustular [Recovering/Resolving]
  - Hyperlipidaemia [Unknown]
  - Renal impairment [Unknown]
  - Rash pustular [Unknown]
  - Depression [Unknown]
  - Gingivectomy [Unknown]
  - Pyelonephritis [Unknown]
  - Increased tendency to bruise [Unknown]
  - Sinus disorder [Unknown]
  - Temporomandibular joint syndrome [Unknown]
  - Inflammation [Unknown]
  - Bladder disorder [Unknown]
  - Fall [Unknown]
  - Mouth ulceration [Not Recovered/Not Resolved]
  - Osteomyelitis [Unknown]
  - Back pain [Unknown]
  - Drug ineffective [Unknown]
  - Muscle spasms [Unknown]
  - Hypersensitivity [Unknown]
